FAERS Safety Report 6874533-2 (Version None)
Quarter: 2010Q2

REPORT INFORMATION
  Report Type: 
  Country: None (occurrence: None)
  Receive Date: 20100610
  Receipt Date: 20100329
  Transmission Date: 20101027
  Serious: No
  Sender: FDA-Public Use
  Company Number: 2010SP019024

PATIENT
  Sex: Male

DRUGS (3)
  1. SAPHRIS [Suspect]
     Indication: DRUG USE FOR UNKNOWN INDICATION
     Dosage: 5 MG;BID
  2. SEROQUEL [Concomitant]
  3. GEODON [Concomitant]

REACTIONS (2)
  - GLOSSODYNIA [None]
  - HYPOAESTHESIA ORAL [None]
